FAERS Safety Report 18139607 (Version 1)
Quarter: 2020Q3

REPORT INFORMATION
  Report Type: Spontaneous
  Country: US (occurrence: US)
  Receive Date: 20200812
  Receipt Date: 20200812
  Transmission Date: 20201103
  Serious: No
  Sender: FDA-Public Use
  Company Number: US-PFIZER INC-2020303867

PATIENT
  Age: 62 Year
  Sex: Male
  Weight: 61.23 kg

DRUGS (1)
  1. PHENYTOIN SODIUM. [Suspect]
     Active Substance: PHENYTOIN SODIUM
     Indication: EPILEPSY
     Dosage: 400 MG, DAILY

REACTIONS (2)
  - Prescription drug used without a prescription [Unknown]
  - Flatulence [Unknown]
